FAERS Safety Report 9443090 (Version 1)
Quarter: 2013Q3

REPORT INFORMATION
  Report Type: Report from Study
  Country: BR (occurrence: BR)
  Receive Date: 20130806
  Receipt Date: 20130806
  Transmission Date: 20140515
  Serious: Yes (Disabling, Other)
  Sender: FDA-Public Use
  Company Number: BR-BAYER-2013-092189

PATIENT
  Sex: Female

DRUGS (3)
  1. BETAFERON [Suspect]
     Indication: RELAPSING-REMITTING MULTIPLE SCLEROSIS
     Dosage: 9.6 MIU, QOD
     Route: 058
     Dates: start: 2009, end: 201304
  2. LOSARTAN POTASSIUM [Concomitant]
     Indication: HYPERTENSION
     Dosage: 50 MG, QD
     Route: 048
  3. AZATHIOPRINE [Concomitant]
     Dosage: 100 MG, QD
     Route: 048
     Dates: start: 200812, end: 201303

REACTIONS (7)
  - Secondary progressive multiple sclerosis [None]
  - Abasia [None]
  - Fatigue [None]
  - Asthenia [None]
  - Balance disorder [None]
  - Drug resistance [None]
  - Pyrexia [Not Recovered/Not Resolved]
